FAERS Safety Report 13038015 (Version 1)
Quarter: 2016Q4

REPORT INFORMATION
  Report Type: Spontaneous
  Country: US (occurrence: US)
  Receive Date: 20161211
  Receipt Date: 20161211
  Transmission Date: 20170207
  Serious: Yes (Hospitalization)
  Sender: FDA-Public Use
  Company Number: None

PATIENT
  Age: 53 Year
  Sex: Female

DRUGS (5)
  1. NEPHRON [Concomitant]
  2. NUTROPIN AQ PEN 10 [Suspect]
     Active Substance: SOMATROPIN
     Indication: DWARFISM
     Dosage: 10MG/2ML QD SUBQ
     Route: 058
     Dates: start: 20151204
  3. SYNTHROID [Concomitant]
     Active Substance: LEVOTHYROXINE SODIUM
  4. CLACIUM [Concomitant]
  5. SODIUM BICARB [Concomitant]

REACTIONS (1)
  - Hospitalisation [None]
